APPROVED DRUG PRODUCT: AURLUMYN
Active Ingredient: ILOPROST
Strength: 100MCG/ML (100MCG/ML)
Dosage Form/Route: SOLUTION;INTRAVENOUS
Application: N217933 | Product #001
Applicant: BTG INTERNATIONAL INC
Approved: Feb 13, 2024 | RLD: Yes | RS: Yes | Type: RX

PATENTS:
Patent 12409183 | Expires: Jul 18, 2044
Patent 12409184 | Expires: Aug 6, 2041

EXCLUSIVITY:
Code: NP | Date: Feb 13, 2027
Code: ODE-465 | Date: Feb 13, 2031